FAERS Safety Report 5612898-X (Version None)
Quarter: 2008Q1

REPORT INFORMATION
  Report Type: 
  Country: None (occurrence: None)
  Receive Date: 20080204
  Receipt Date: 20080125
  Transmission Date: 20080703
  Serious: Yes (Other)
  Sender: FDA-Public Use
  Company Number: NG-BOEHRINGER INGELHEIM GMBH, GERMANY-2008-DE-00500GD

PATIENT

DRUGS (9)
  1. NEVIRAPINE [Suspect]
     Indication: HIV INFECTION
     Route: 048
  2. NEVIRAPINE [Suspect]
     Indication: PROPHYLAXIS
     Route: 064
  3. NEVIRAPINE [Suspect]
     Indication: HUMAN IMMUNODEFICIENCY VIRUS TRANSMISSION
     Dosage: 2 MG/KG
     Route: 048
  4. STAVUDINE [Suspect]
     Indication: HIV INFECTION
     Route: 048
  5. STAVUDINE [Suspect]
     Indication: PROPHYLAXIS
     Route: 064
  6. STAVUDINE [Suspect]
     Indication: HUMAN IMMUNODEFICIENCY VIRUS TRANSMISSION
  7. LAMIVUDINE [Suspect]
     Indication: HIV INFECTION
     Route: 048
  8. LAMIVUDINE [Suspect]
     Indication: PROPHYLAXIS
     Route: 064
  9. LAMIVUDINE [Suspect]
     Indication: HUMAN IMMUNODEFICIENCY VIRUS TRANSMISSION

REACTIONS (5)
  - ANAEMIA [None]
  - ANOREXIA [None]
  - HIV TEST POSITIVE [None]
  - RASH [None]
  - URTICARIA [None]
